FAERS Safety Report 8410276 (Version 2)
Quarter: 2012Q4

REPORT INFORMATION
  Report Type: 
  Country: BR (occurrence: BR)
  Receive Date: 20120217
  Receipt Date: 20120927
  Transmission Date: 20130627
  Serious: Yes (Other)
  Sender: FDA-Public Use
  Company Number: BR-AMGEN-BRASP2012009036

PATIENT
  Age: 64 Year
  Sex: Female
  Weight: 84 kg

DRUGS (4)
  1. ENBREL [Suspect]
     Indication: RHEUMATOID ARTHRITIS
     Dosage: 50 mg, weekly
     Route: 058
     Dates: start: 20060715
  2. ENBREL [Suspect]
     Dosage: 50 mg, qwk
     Route: 058
     Dates: start: 201111, end: 201204
  3. GLUCOSAMINE SULFATE [Concomitant]
     Dosage: 1.5 mg, UNK
  4. METYLDOPA [Concomitant]
     Indication: HYPERTENSION
     Dosage: UNK

REACTIONS (6)
  - Rheumatoid arthritis [Not Recovered/Not Resolved]
  - Arthropathy [Not Recovered/Not Resolved]
  - Arthralgia [Not Recovered/Not Resolved]
  - Gait disturbance [Not Recovered/Not Resolved]
  - Drug ineffective [Not Recovered/Not Resolved]
  - Pain [Unknown]
